FAERS Safety Report 16599979 (Version 1)
Quarter: 2019Q3

REPORT INFORMATION
  Report Type: Spontaneous
  Country: CN (occurrence: CN)
  Receive Date: 20190719
  Receipt Date: 20190719
  Transmission Date: 20191004
  Serious: Yes (Other)
  Sender: FDA-Public Use
  Company Number: CN-PFIZER INC-2019303763

PATIENT
  Age: 69 Year
  Sex: Male

DRUGS (2)
  1. TE LA XIN [Concomitant]
     Indication: BLOOD IMMUNOGLOBULIN E INCREASED
     Dosage: 3.0 G, 2X/DAY
     Dates: start: 20190708
  2. VFEND [Suspect]
     Active Substance: VORICONAZOLE
     Indication: BLOOD IMMUNOGLOBULIN E INCREASED
     Dosage: 0.2 G, 2X/DAY
     Route: 041
     Dates: start: 20190708, end: 20190714

REACTIONS (4)
  - Cardiac disorder [Unknown]
  - Product use in unapproved indication [Unknown]
  - Brain natriuretic peptide increased [Unknown]
  - Off label use [Unknown]

NARRATIVE: CASE EVENT DATE: 20190708
